FAERS Safety Report 23090865 (Version 1)
Quarter: 2023Q4

REPORT INFORMATION
  Report Type: Spontaneous
  Country: US (occurrence: None)
  Receive Date: 20231020
  Receipt Date: 20231020
  Transmission Date: 20240109
  Serious: Yes (Death)
  Sender: FDA-Public Use
  Company Number: None

PATIENT
  Sex: 0
  Weight: 71 kg

DRUGS (1)
  1. TENECTEPLASE [Suspect]
     Active Substance: TENECTEPLASE

REACTIONS (4)
  - Cerebral haemorrhage [None]
  - Drug level above therapeutic [None]
  - Product label issue [None]
  - Product use in unapproved indication [None]
